FAERS Safety Report 9688036 (Version 1)
Quarter: 2013Q4

REPORT INFORMATION
  Report Type: Spontaneous
  Country: US (occurrence: US)
  Receive Date: 20131114
  Receipt Date: 20131114
  Transmission Date: 20140711
  Serious: Yes (Death)
  Sender: FDA-Public Use
  Company Number: US-ASTRAZENECA-2013SE82875

PATIENT
  Sex: Male

DRUGS (7)
  1. BRILINTA [Suspect]
     Indication: ACUTE CORONARY SYNDROME
     Route: 048
     Dates: start: 2013
  2. ARMATHYROID [Concomitant]
  3. FLOMAX [Concomitant]
  4. IMMILURIDE [Concomitant]
  5. OTHER [Concomitant]
  6. MANY PSYCHIATRIC MEDS [Concomitant]
  7. PRILOSEC OTC [Suspect]
     Route: 048

REACTIONS (1)
  - General physical health deterioration [Fatal]
